FAERS Safety Report 23180754 (Version 1)
Quarter: 2023Q4

REPORT INFORMATION
  Report Type: Spontaneous
  Country: IT (occurrence: IT)
  Receive Date: 20231114
  Receipt Date: 20231114
  Transmission Date: 20240110
  Serious: Yes (Hospitalization)
  Sender: FDA-Public Use
  Company Number: None

PATIENT
  Age: 75 Year
  Sex: Female
  Weight: 48 kg

DRUGS (10)
  1. CARBOPLATIN [Suspect]
     Active Substance: CARBOPLATIN
     Indication: Lung neoplasm malignant
     Dosage: 400 MILLIGRAM
     Route: 042
     Dates: start: 20231010
  2. PACLITAXEL [Suspect]
     Active Substance: PACLITAXEL
     Indication: Lung neoplasm malignant
     Dosage: 230 MILLIGRAM
     Route: 042
     Dates: start: 20231010
  3. DEXAMETHASONE [Concomitant]
     Active Substance: DEXAMETHASONE
     Indication: Steroid therapy
     Dosage: UNK
     Route: 042
     Dates: start: 20231010
  4. DEXAMETHASONE [Concomitant]
     Active Substance: DEXAMETHASONE
     Indication: Chemotherapy side effect prophylaxis
  5. GRANISETRON [Concomitant]
     Active Substance: GRANISETRON
     Indication: Vomiting
     Dosage: UNK
     Route: 042
     Dates: start: 20231010
  6. GRANISETRON [Concomitant]
     Active Substance: GRANISETRON
     Indication: Chemotherapy side effect prophylaxis
  7. LERCADIP [LERCANIDIPINE] [Concomitant]
     Indication: Hypertension
     Dosage: UNK
     Route: 048
     Dates: start: 2023
  8. METOCLOPRAMIDE [Concomitant]
     Active Substance: METOCLOPRAMIDE
     Indication: Nausea
     Dosage: UNK
     Route: 042
     Dates: start: 20231010
  9. ROSUASA [Concomitant]
     Indication: Hypertension
     Dosage: UNK
     Route: 048
     Dates: start: 2023
  10. ROSUASA [Concomitant]
     Indication: Dyslipidaemia

REACTIONS (5)
  - Chest pain [Recovered/Resolved]
  - Asthenia [Recovered/Resolved]
  - Oxygen saturation decreased [Recovered/Resolved]
  - Rash [Recovering/Resolving]
  - Dyspnoea [Recovered/Resolved]

NARRATIVE: CASE EVENT DATE: 20231010
